FAERS Safety Report 5367824-8 (Version None)
Quarter: 2007Q2

REPORT INFORMATION
  Report Type: 
  Country: None (occurrence: None)
  Receive Date: 20070622
  Receipt Date: 20070611
  Transmission Date: 20071010
  Serious: Yes (Other)
  Sender: FDA-Public Use
  Company Number: FR-PFIZER INC-2006137454

PATIENT
  Sex: Female
  Weight: 64 kg

DRUGS (6)
  1. SU-011,248 [Suspect]
     Indication: RENAL CELL CARCINOMA STAGE UNSPECIFIED
     Route: 048
     Dates: start: 20060314, end: 20060522
  2. SU-011,248 [Suspect]
     Route: 048
     Dates: start: 20060610, end: 20061009
  3. XANAX [Concomitant]
     Route: 048
  4. SECTRAL [Concomitant]
     Route: 048
     Dates: start: 20030101
  5. DEROXAT [Concomitant]
     Route: 048
  6. FUROSEMIDE [Concomitant]
     Route: 048

REACTIONS (1)
  - PROTEINURIA [None]
